FAERS Safety Report 5301708-6 (Version None)
Quarter: 2007Q2

REPORT INFORMATION
  Report Type: 
  Country: None (occurrence: None)
  Receive Date: 20070419
  Receipt Date: 20070405
  Transmission Date: 20071010
  Serious: Yes (Hospitalization)
  Sender: FDA-Public Use
  Company Number: PHRM2007FR01235

PATIENT
  Age: 5 Year
  Sex: Female

DRUGS (1)
  1. TRILEPTAL [Suspect]
     Indication: PARTIAL SEIZURES
     Dosage: UNK, UNK
     Route: 048
     Dates: end: 20070301

REACTIONS (4)
  - CONJUNCTIVITIS [None]
  - LYMPHADENOPATHY [None]
  - PYREXIA [None]
  - RASH MORBILLIFORM [None]
